FAERS Safety Report 4577385-9 (Version None)
Quarter: 2005Q1

REPORT INFORMATION
  Report Type: 
  Country: None (occurrence: None)
  Receive Date: 20050210
  Receipt Date: 20050201
  Transmission Date: 20050727
  Serious: Yes (Other)
  Sender: FDA-Public Use
  Company Number: 392676

PATIENT
  Sex: Male

DRUGS (1)
  1. DILATREND [Suspect]
     Route: 065

REACTIONS (1)
  - RETINAL OEDEMA [None]
